FAERS Safety Report 7451387-7 (Version None)
Quarter: 2011Q2

REPORT INFORMATION
  Report Type: 
  Country: None (occurrence: None)
  Receive Date: 20110502
  Receipt Date: 20110427
  Transmission Date: 20111010
  Serious: Yes (Death, Life-Threatening, Hospitalization, Other)
  Sender: FDA-Public Use
  Company Number: US-ALEXION-A201001353

PATIENT
  Sex: Female

DRUGS (1)
  1. SOLIRIS [Suspect]
     Indication: PAROXYSMAL NOCTURNAL HAEMOGLOBINURIA
     Dosage: 5 DOSES
     Route: 042
     Dates: end: 20100907

REACTIONS (6)
  - RESPIRATORY FAILURE [None]
  - BRAIN DEATH [None]
  - NON-SMALL CELL LUNG CANCER [None]
  - OBSTRUCTIVE AIRWAYS DISORDER [None]
  - HAEMORRHAGE [None]
  - BONE MARROW FAILURE [None]
